FAERS Safety Report 9374716 (Version 1)
Quarter: 2013Q2

REPORT INFORMATION
  Report Type: Report from Study
  Country: DE (occurrence: DE)
  Receive Date: 20130628
  Receipt Date: 20130628
  Transmission Date: 20140414
  Serious: Yes (Hospitalization)
  Sender: FDA-Public Use
  Company Number: DE-ROCHE-676106

PATIENT
  Age: 47 Year
  Sex: Male
  Weight: 93 kg

DRUGS (6)
  1. PEG-INTERFERON ALFA 2A [Suspect]
     Indication: CHRONIC HEPATITIS C
     Route: 058
     Dates: start: 20090909, end: 20091104
  2. RIBAVIRIN [Suspect]
     Indication: CHRONIC HEPATITIS C
     Route: 048
     Dates: start: 20090909, end: 20091104
  3. SPIRONOLACTONE [Concomitant]
     Indication: HEPATIC CIRRHOSIS
     Route: 048
  4. TORASEMIDE [Concomitant]
     Indication: ASCITES
     Route: 048
  5. PROPRANOLOL [Concomitant]
     Route: 048
  6. L-POLAMIDON [Concomitant]
     Route: 048

REACTIONS (1)
  - Hepatic encephalopathy [Recovered/Resolved]
